FAERS Safety Report 7964803-9 (Version None)
Quarter: 2011Q4

REPORT INFORMATION
  Report Type: 
  Country: None (occurrence: None)
  Receive Date: 20111208
  Receipt Date: 20111202
  Transmission Date: 20120403
  Serious: No
  Sender: FDA-Public Use
  Company Number: US-B.I. PHARMACEUTICALS,INC./RIDGEFIELD-2011-BP-27429BP

PATIENT

DRUGS (1)
  1. MIRAPEX [Suspect]

REACTIONS (4)
  - PATHOLOGICAL GAMBLING [None]
  - OBSESSIVE-COMPULSIVE DISORDER [None]
  - COMPULSIVE SHOPPING [None]
  - HYPERSEXUALITY [None]
